FAERS Safety Report 19977902 (Version 1)
Quarter: 2021Q4

REPORT INFORMATION
  Report Type: Spontaneous
  Country: US (occurrence: US)
  Receive Date: 20211020
  Receipt Date: 20211020
  Transmission Date: 20220303
  Serious: Yes (Hospitalization)
  Sender: FDA-Public Use
  Company Number: None

PATIENT
  Age: 85 Year
  Sex: Male
  Weight: 90 kg

DRUGS (3)
  1. INQOVI [Suspect]
     Active Substance: CEDAZURIDINE\DECITABINE
     Indication: Myelodysplastic syndrome
     Dosage: ?          QUANTITY:1 TABLET(S);
     Route: 048
     Dates: start: 20211006, end: 20211006
  2. ATENOLOL [Concomitant]
     Active Substance: ATENOLOL
  3. TYLENOL [Concomitant]
     Active Substance: ACETAMINOPHEN

REACTIONS (5)
  - Nausea [None]
  - Hypotension [None]
  - Cardiac arrest [None]
  - Platelet count decreased [None]
  - Haematemesis [None]

NARRATIVE: CASE EVENT DATE: 20211008
